FAERS Safety Report 8775708 (Version 2)
Quarter: 2013Q4

REPORT INFORMATION
  Report Type: Spontaneous
  Country: US (occurrence: US)
  Receive Date: 20120910
  Receipt Date: 20131101
  Transmission Date: 20140711
  Serious: No
  Sender: FDA-Public Use
  Company Number: US-009507513-1208USA011746

PATIENT
  Sex: Male

DRUGS (8)
  1. REBETOL [Suspect]
     Indication: HEPATITIS C
     Dosage: UNK
     Dates: start: 20100806, end: 20101105
  2. PEGASYS [Concomitant]
     Indication: HEPATITIS C
     Dosage: UNK
     Dates: start: 20090101, end: 20120101
  3. PEGASYS [Concomitant]
     Dosage: UNK
     Dates: start: 20100806, end: 20101105
  4. METFORMIN [Concomitant]
     Indication: DIABETES MELLITUS
     Dosage: UNK
  5. INSULIN [Concomitant]
     Indication: DIABETES MELLITUS
     Dosage: UNK
  6. LISINOPRIL [Concomitant]
     Indication: HYPERTENSION
     Dosage: UNK
  7. AMBIEN [Concomitant]
     Indication: INSOMNIA
  8. COPEGUS [Concomitant]
     Indication: HEPATITIS C
     Dosage: UNK
     Dates: start: 20090101, end: 20100101

REACTIONS (2)
  - Hepatitis C [Unknown]
  - Drug ineffective [Unknown]
